FAERS Safety Report 14705626 (Version 2)
Quarter: 2018Q2

REPORT INFORMATION
  Report Type: Spontaneous
  Country: GB (occurrence: GB)
  Receive Date: 20180402
  Receipt Date: 20180405
  Transmission Date: 20180711
  Serious: Yes (Life-Threatening, Hospitalization)
  Sender: FDA-Public Use
  Company Number: GB-TEVA-148517ISR

PATIENT
  Age: 51 Year
  Sex: Female

DRUGS (1)
  1. PROPRANOLOL [Suspect]
     Active Substance: PROPRANOLOL HYDROCHLORIDE
     Indication: PANIC ATTACK
     Route: 065

REACTIONS (4)
  - Phaeochromocytoma [Unknown]
  - Myocardial infarction [Unknown]
  - Pulmonary oedema [Unknown]
  - Acute kidney injury [Unknown]
